FAERS Safety Report 7077357-9 (Version None)
Quarter: 2010Q4

REPORT INFORMATION
  Report Type: 
  Country: None (occurrence: None)
  Receive Date: 20101022
  Receipt Date: 20101008
  Transmission Date: 20110411
  Serious: Yes (Death)
  Sender: FDA-Public Use
  Company Number: APP201000830

PATIENT
  Sex: Male

DRUGS (12)
  1. HEPARIN SODIUM INJECTION [Suspect]
     Indication: AORTIC ANEURYSM
     Dosage: 5000 UNITS IN 500 ML ; INTRAOPERATIVE
     Dates: start: 20080124
  2. HEPARIN SODIUM INJECTION [Suspect]
     Indication: CATHETERISATION CARDIAC
     Dosage: 5000 UNITS IN 500 ML ; INTRAOPERATIVE
     Dates: start: 20080124
  3. HEPARIN SODIUM INJECTION [Suspect]
     Indication: CORONARY ARTERY BYPASS
     Dosage: 5000 UNITS IN 500 ML ; INTRAOPERATIVE
     Dates: start: 20080124
  4. HEPARIN SODIUM INJECTION [Suspect]
     Indication: AORTIC ANEURYSM
     Dosage: 5000 UNITS IN 500 ML ; INTRAOPERATIVE
     Dates: start: 20080606
  5. HEPARIN SODIUM INJECTION [Suspect]
     Indication: CATHETERISATION CARDIAC
     Dosage: 5000 UNITS IN 500 ML ; INTRAOPERATIVE
     Dates: start: 20080606
  6. HEPARIN SODIUM INJECTION [Suspect]
     Indication: CORONARY ARTERY BYPASS
     Dosage: 5000 UNITS IN 500 ML ; INTRAOPERATIVE
     Dates: start: 20080606
  7. HEPARIN SODIUM INJECTION [Suspect]
     Indication: AORTIC ANEURYSM
     Dosage: 5000 UNITS IN 500 ML ; INTRAOPERATIVE
     Dates: start: 20080609
  8. HEPARIN SODIUM INJECTION [Suspect]
     Indication: CATHETERISATION CARDIAC
     Dosage: 5000 UNITS IN 500 ML ; INTRAOPERATIVE
     Dates: start: 20080609
  9. HEPARIN SODIUM INJECTION [Suspect]
     Indication: CORONARY ARTERY BYPASS
     Dosage: 5000 UNITS IN 500 ML ; INTRAOPERATIVE
     Dates: start: 20080609
  10. HEPARIN SODIUM INJECTION [Suspect]
     Indication: AORTIC ANEURYSM
     Dosage: 5000 UNITS IN 500 ML ; INTRAOPERATIVE
     Dates: start: 20080610
  11. HEPARIN SODIUM INJECTION [Suspect]
     Indication: CATHETERISATION CARDIAC
     Dosage: 5000 UNITS IN 500 ML ; INTRAOPERATIVE
     Dates: start: 20080610
  12. HEPARIN SODIUM INJECTION [Suspect]
     Indication: CORONARY ARTERY BYPASS
     Dosage: 5000 UNITS IN 500 ML ; INTRAOPERATIVE
     Dates: start: 20080610

REACTIONS (12)
  - ABDOMINAL DISTENSION [None]
  - ATRIAL FIBRILLATION [None]
  - COMPARTMENT SYNDROME [None]
  - HEPARIN-INDUCED THROMBOCYTOPENIA [None]
  - HEPATIC FAILURE [None]
  - HEPATIC ISCHAEMIA [None]
  - HYPOTENSION [None]
  - LACTIC ACIDOSIS [None]
  - MULTI-ORGAN FAILURE [None]
  - RENAL FAILURE ACUTE [None]
  - RENAL ISCHAEMIA [None]
  - SKIN DISORDER [None]
